FAERS Safety Report 5217377-X (Version None)
Quarter: 2007Q1

REPORT INFORMATION
  Report Type: 
  Country: None (occurrence: None)
  Receive Date: 20070124
  Receipt Date: 20060322
  Transmission Date: 20070707
  Serious: No
  Sender: FDA-Public Use
  Company Number: US-GLAXOSMITHKLINE-A0590801A

PATIENT
  Age: 49 Year
  Sex: Female
  Weight: 86.4 kg

DRUGS (5)
  1. PAXIL CR [Suspect]
     Indication: DRUG USE FOR UNKNOWN INDICATION
     Dosage: 12.5MG PER DAY
     Route: 048
     Dates: start: 20051007, end: 20060101
  2. TOPAMAX [Concomitant]
     Dosage: 100MG AT NIGHT
     Route: 048
  3. RELPAX [Concomitant]
     Dosage: 40MG AS REQUIRED
     Route: 048
  4. NAPROSYN [Concomitant]
     Dosage: 500MG TWICE PER DAY
     Route: 048
  5. ESTRACE [Concomitant]
     Dosage: 1MG PER DAY
     Route: 048

REACTIONS (1)
  - MIGRAINE [None]
